FAERS Safety Report 4303517-3 (Version None)
Quarter: 2004Q1

REPORT INFORMATION
  Report Type: 
  Country: None (occurrence: None)
  Receive Date: 20040223
  Receipt Date: 20040209
  Transmission Date: 20041129
  Serious: Yes (Death, Other)
  Sender: FDA-Public Use
  Company Number: 2004007982

PATIENT
  Age: 76 Year
  Sex: Male

DRUGS (3)
  1. VIAGRA [Suspect]
     Indication: ILL-DEFINED DISORDER
     Dosage: ORAL
     Route: 048
     Dates: start: 20040205
  2. ETHANOL (ETHANOL) [Suspect]
     Indication: ILL-DEFINED DISORDER
     Dates: start: 20040205
  3. PIOGLITAZONE HCL [Concomitant]

REACTIONS (5)
  - BLOOD PRESSURE INCREASED [None]
  - CARDIAC FAILURE [None]
  - CHEST DISCOMFORT [None]
  - DYSPNOEA [None]
  - VOMITING [None]
